FAERS Safety Report 6539831-0 (Version None)
Quarter: 2010Q1

REPORT INFORMATION
  Report Type: 
  Country: None (occurrence: None)
  Receive Date: 20100115
  Receipt Date: 20100105
  Transmission Date: 20100710
  Serious: Yes (Other)
  Sender: FDA-Public Use
  Company Number: CA-ABBOTT-09P-028-0497188-00

PATIENT
  Sex: Female
  Weight: 99.88 kg

DRUGS (4)
  1. HUMIRA [Suspect]
     Indication: RHEUMATOID ARTHRITIS
     Route: 058
     Dates: start: 20061223
  2. HUMIRA [Suspect]
  3. ANTIBIOTICS [Concomitant]
     Indication: CELLULITIS
     Route: 042
     Dates: end: 20090112
  4. APO-CEPHALEX [Concomitant]
     Indication: CELLULITIS
     Dates: start: 20090113

REACTIONS (2)
  - CELLULITIS [None]
  - OSTEOARTHRITIS [None]
